FAERS Safety Report 14942743 (Version 1)
Quarter: 2018Q2

REPORT INFORMATION
  Report Type: Spontaneous
  Country: FR (occurrence: FR)
  Receive Date: 20180528
  Receipt Date: 20180528
  Transmission Date: 20180711
  Serious: Yes (Other)
  Sender: FDA-Public Use
  Company Number: FR-MERCK KGAA-2048530

PATIENT
  Age: 57 Year
  Sex: Female
  Weight: 72 kg

DRUGS (1)
  1. NOVOTHYROX [Suspect]
     Active Substance: LEVOTHYROXINE SODIUM
     Indication: HYPOTHYROIDISM
     Route: 048
     Dates: start: 20170403, end: 20170904

REACTIONS (8)
  - Tension [Recovering/Resolving]
  - Disturbance in attention [Recovering/Resolving]
  - Asthenia [Recovering/Resolving]
  - Fatigue [Recovering/Resolving]
  - Impaired work ability [Recovering/Resolving]
  - Amnesia [Recovering/Resolving]
  - Headache [Recovering/Resolving]
  - Intellectual disability [Recovering/Resolving]

NARRATIVE: CASE EVENT DATE: 20170406
